FAERS Safety Report 4303643-9 (Version None)
Quarter: 2004Q1

REPORT INFORMATION
  Report Type: 
  Country: None (occurrence: None)
  Receive Date: 20040223
  Receipt Date: 20040213
  Transmission Date: 20041129
  Serious: Yes (Other)
  Sender: FDA-Public Use
  Company Number: 2004196305US

PATIENT
  Age: 56 Year
  Sex: Male

DRUGS (12)
  1. LINEZOLID(LINEZOLID) SOLUTION, STERILE [Suspect]
     Dosage: 600 MG, BID
  2. HYDRYLLIN TAB [Suspect]
     Indication: PRURITUS
     Dosage: 25 MG, BID
  3. FLAGYL [Concomitant]
  4. AZTREONAM (AZTREONAM) [Concomitant]
  5. VANCOMYCIN [Concomitant]
  6. CIPROFLOXACIN [Concomitant]
  7. INSULIN [Concomitant]
  8. ROSIGLITAZONE MALEATE [Concomitant]
  9. CLOPIDOGREL BISULFATE [Concomitant]
  10. RAMIPRIL [Concomitant]
  11. PIPERACILLIN SODIUM W/TAZOBACTAM SODIUM (TAZOBACTAM SODIUM) [Concomitant]
  12. FLUCONAZOLE [Concomitant]

REACTIONS (12)
  - AGGRESSION [None]
  - DELIRIUM [None]
  - DRUG INTERACTION [None]
  - HALLUCINATION, AUDITORY [None]
  - HALLUCINATION, VISUAL [None]
  - PARANOIA [None]
  - PERSECUTORY DELUSION [None]
  - PSYCHOMOTOR HYPERACTIVITY [None]
  - PSYCHOTIC DISORDER [None]
  - SKIN WARM [None]
  - STRABISMUS [None]
  - TACHYCARDIA [None]
